FAERS Safety Report 21267384 (Version 2)
Quarter: 2022Q3

REPORT INFORMATION
  Report Type: Spontaneous
  Country: JP (occurrence: JP)
  Receive Date: 20220829
  Receipt Date: 20220905
  Transmission Date: 20221026
  Serious: Yes (Death, Other)
  Sender: FDA-Public Use
  Company Number: JP-GSKJP-JP2022JPN123882AA

PATIENT

DRUGS (5)
  1. SERETIDE [Suspect]
     Active Substance: FLUTICASONE PROPIONATE\SALMETEROL XINAFOATE
     Indication: Asthma
     Dosage: 2 INHALATIONS PER DOSE, BID
     Route: 055
     Dates: end: 20220803
  2. SERETIDE [Suspect]
     Active Substance: FLUTICASONE PROPIONATE\SALMETEROL XINAFOATE
     Indication: Chronic obstructive pulmonary disease
  3. SULTANOL [Concomitant]
     Active Substance: ALBUTEROL SULFATE
     Indication: Asthma
     Dosage: UNK (USED ON AN AS NEEDED-BASIS AT THE TIME OF AN ATTACK)
     Route: 055
     Dates: end: 20220803
  4. KIPRES TABLETS [Concomitant]
     Indication: Asthma
     Dosage: UNK, QD
     Route: 048
     Dates: end: 20220813
  5. ALESION TABLETS [Concomitant]
     Indication: Asthma
     Dosage: UNK, QD
     Route: 048
     Dates: end: 20220813

REACTIONS (1)
  - Pneumonia [Fatal]
